FAERS Safety Report 10457563 (Version 1)
Quarter: 2014Q3

REPORT INFORMATION
  Report Type: Report from Study
  Country: AR (occurrence: AR)
  Receive Date: 20140916
  Receipt Date: 20140916
  Transmission Date: 20150326
  Serious: Yes (Other)
  Sender: FDA-Public Use
  Company Number: PHHY2014AR119704

PATIENT
  Sex: Male

DRUGS (1)
  1. DIOVAN [Suspect]
     Active Substance: VALSARTAN
     Indication: HYPERTENSION
     Dosage: 1 DF (320 MG) DAILY
     Route: 048

REACTIONS (3)
  - Amnesia [Not Recovered/Not Resolved]
  - Diabetes mellitus inadequate control [Unknown]
  - Diabetes mellitus [Unknown]
